FAERS Safety Report 6646488-7 (Version None)
Quarter: 2010Q1

REPORT INFORMATION
  Report Type: 
  Country: None (occurrence: None)
  Receive Date: 20100317
  Receipt Date: 20100308
  Transmission Date: 20100710
  Serious: Yes (Hospitalization)
  Sender: FDA-Public Use
  Company Number: ALL1-2010-01423

PATIENT
  Age: 61 Year
  Sex: Male

DRUGS (1)
  1. FOSRENOL [Suspect]
     Indication: HYPERPHOSPHATAEMIA
     Dosage: 1000 MG WITH EACH MEAL DAILY, ORAL
     Route: 048
     Dates: start: 20060101

REACTIONS (1)
  - ADVERSE EVENT [None]
